FAERS Safety Report 9877189 (Version 1)
Quarter: 2014Q1

REPORT INFORMATION
  Report Type: Spontaneous
  Country: US (occurrence: US)
  Receive Date: 20140206
  Receipt Date: 20140206
  Transmission Date: 20141002
  Serious: No
  Sender: FDA-Public Use
  Company Number: US-BAYER-2014-018896

PATIENT
  Age: 61 Year
  Sex: Male
  Weight: 77 kg

DRUGS (2)
  1. ALEVE CAPLET [Suspect]
     Indication: PAIN PROPHYLAXIS
     Route: 048
  2. ALEVE CAPLET [Suspect]
     Indication: ARTHRITIS

REACTIONS (2)
  - Intentional drug misuse [None]
  - Incorrect drug administration duration [None]
